FAERS Safety Report 8420056-9 (Version None)
Quarter: 2012Q2

REPORT INFORMATION
  Report Type: 
  Country: None (occurrence: None)
  Receive Date: 20120607
  Receipt Date: 20120605
  Transmission Date: 20120825
  Serious: Yes (Other)
  Sender: FDA-Public Use
  Company Number: US-PURDUE-USA-2012-0085860

PATIENT
  Age: 42 Year
  Sex: Female
  Weight: 63.492 kg

DRUGS (1)
  1. COLACE CAPSULES [Suspect]
     Indication: CONSTIPATION
     Dosage: 1 CAPSULE, ONE TIME
     Route: 048
     Dates: start: 20120420, end: 20120420

REACTIONS (5)
  - DEHYDRATION [None]
  - ABDOMINAL PAIN [None]
  - ASTHENIA [None]
  - GASTROINTESTINAL MOTILITY DISORDER [None]
  - DIARRHOEA [None]
